FAERS Safety Report 16264438 (Version 2)
Quarter: 2020Q2

REPORT INFORMATION
  Report Type: Spontaneous
  Country: US (occurrence: US)
  Receive Date: 20190502
  Receipt Date: 20200428
  Transmission Date: 20200713
  Serious: No
  Sender: FDA-Public Use
  Company Number: US-PFIZER INC-2019182024

PATIENT
  Age: 81 Year
  Sex: Female

DRUGS (3)
  1. XALATAN [Suspect]
     Active Substance: LATANOPROST
     Indication: OPTIC ISCHAEMIC NEUROPATHY
     Dosage: 1 DROP, 1X/DAY (ONE DROP INTO THE LEFT EYE AT NIGHT BEFORE BED)
     Route: 047
     Dates: start: 2005
  2. PENTOXIFYLLINE. [Concomitant]
     Active Substance: PENTOXIFYLLINE
     Indication: CARDIAC DISORDER
     Dosage: UNK
  3. XALATAN [Suspect]
     Active Substance: LATANOPROST
     Indication: INTRAOCULAR PRESSURE INCREASED

REACTIONS (1)
  - Hypoacusis [Unknown]
